FAERS Safety Report 21794475 (Version 1)
Quarter: 2022Q4

REPORT INFORMATION
  Report Type: Spontaneous
  Country: US (occurrence: US)
  Receive Date: 20221229
  Receipt Date: 20221229
  Transmission Date: 20230112
  Serious: Yes (Hospitalization, Other)
  Sender: FDA-Public Use
  Company Number: US-EDENBRIDGE PHARMACEUTICALS, LLC-US-2022EDE000060

PATIENT
  Age: 42 Year
  Sex: Male

DRUGS (8)
  1. LOPERAMIDE [Suspect]
     Active Substance: LOPERAMIDE
     Indication: Drug dependence
     Dosage: 200 MG, QD
     Route: 065
  2. LOPERAMIDE [Suspect]
     Active Substance: LOPERAMIDE
     Dosage: 768 MG, QD
     Route: 065
  3. VITAMIN C [Concomitant]
     Active Substance: ASCORBIC ACID
     Indication: Cardiovascular event prophylaxis
     Dosage: 12,000-14,000 MG DAILY
     Route: 065
  4. MAGNESIUM CITRATE [Concomitant]
     Active Substance: MAGNESIUM CITRATE
     Indication: Cardiovascular event prophylaxis
     Dosage: 1200 MG, QD
     Route: 065
  5. VITAMIN D3 [Concomitant]
     Active Substance: CHOLECALCIFEROL
     Indication: Cardiovascular event prophylaxis
     Dosage: 4000U DAILY
     Route: 065
  6. FISH OIL [Concomitant]
     Active Substance: FISH OIL
     Indication: Cardiovascular event prophylaxis
     Route: 065
  7. centrum multivitamin [Concomitant]
     Indication: Cardiovascular event prophylaxis
     Dosage: 2 PILLS DAILY
     Route: 065
  8. ZINC [Concomitant]
     Active Substance: ZINC
     Indication: Cardiovascular event prophylaxis
     Dosage: UNK
     Route: 065

REACTIONS (9)
  - Long QT syndrome [Unknown]
  - Toxicity to various agents [Unknown]
  - Syncope [Unknown]
  - Ventricular tachycardia [Unknown]
  - Dizziness [Unknown]
  - Fall [Unknown]
  - Palpitations [Unknown]
  - Intentional product misuse [Unknown]
  - Overdose [Unknown]
